FAERS Safety Report 18595692 (Version 1)
Quarter: 2020Q4

REPORT INFORMATION
  Report Type: Spontaneous
  Country: US (occurrence: US)
  Receive Date: 20201209
  Receipt Date: 20201209
  Transmission Date: 20210114
  Serious: No
  Sender: FDA-Public Use
  Company Number: US-PFIZER INC-2020473433

PATIENT
  Age: 31 Year
  Sex: Male

DRUGS (1)
  1. GENOTROPIN [Suspect]
     Active Substance: SOMATROPIN
     Dosage: 0.4 MG, DAILY

REACTIONS (6)
  - Device information output issue [Unknown]
  - Device delivery system issue [Unknown]
  - Device issue [Unknown]
  - Incorrect dose administered [Unknown]
  - Device use issue [Unknown]
  - Blood growth hormone decreased [Unknown]

NARRATIVE: CASE EVENT DATE: 2020
